FAERS Safety Report 10678604 (Version 1)
Quarter: 2014Q4

REPORT INFORMATION
  Report Type: Spontaneous
  Country: FR (occurrence: FR)
  Receive Date: 20141229
  Receipt Date: 20141229
  Transmission Date: 20150529
  Serious: Yes (Hospitalization)
  Sender: FDA-Public Use
  Company Number: FR-SA-2014SA178336

PATIENT
  Age: 84 Year
  Sex: Female

DRUGS (7)
  1. ARICEPT [Concomitant]
     Active Substance: DONEPEZIL HYDROCHLORIDE
  2. SINTROM [Concomitant]
     Active Substance: ACENOCOUMAROL
  3. STILNOX [Suspect]
     Active Substance: ZOLPIDEM TARTRATE
     Route: 048
     Dates: start: 20080427, end: 20080501
  4. LASILIX [Concomitant]
     Active Substance: FUROSEMIDE
  5. TOPALGIC [Suspect]
     Active Substance: TRAMADOL
     Route: 048
     Dates: start: 20080427, end: 20080501
  6. ALDACTONE [Concomitant]
     Active Substance: SPIRONOLACTONE
  7. ISOPTIN [Concomitant]
     Active Substance: VERAPAMIL HYDROCHLORIDE

REACTIONS (2)
  - Coma [Recovered/Resolved]
  - Pneumonia aspiration [Recovered/Resolved]

NARRATIVE: CASE EVENT DATE: 20080501
